APPROVED DRUG PRODUCT: VARENICLINE TARTRATE
Active Ingredient: VARENICLINE TARTRATE
Strength: EQ 1MG BASE
Dosage Form/Route: TABLET;ORAL
Application: A201785 | Product #002 | TE Code: AB
Applicant: PH HEALTH LTD
Approved: Aug 11, 2021 | RLD: No | RS: Yes | Type: RX